FAERS Safety Report 21731237 (Version 2)
Quarter: 2022Q4

REPORT INFORMATION
  Report Type: Spontaneous
  Country: BR (occurrence: BR)
  Receive Date: 20221215
  Receipt Date: 20221220
  Transmission Date: 20230113
  Serious: Yes (Other)
  Sender: FDA-Public Use
  Company Number: BR-JNJFOC-20221231300

PATIENT
  Age: 54 Year
  Sex: Female

DRUGS (8)
  1. SPRAVATO [Suspect]
     Active Substance: ESKETAMINE
     Indication: Depression
     Dosage: INDUCTION PHASE
  2. SPRAVATO [Suspect]
     Active Substance: ESKETAMINE
     Dosage: MAINTAINENCE PHASE
  3. SPRAVATO [Suspect]
     Active Substance: ESKETAMINE
  4. ARIPIPRAZOLE [Concomitant]
     Active Substance: ARIPIPRAZOLE
     Dosage: 0-0-1/2
     Route: 065
  5. NEURAL [LAMOTRIGINE] [Concomitant]
     Route: 065
  6. BRINTELLIX [Concomitant]
     Active Substance: VORTIOXETINE HYDROBROMIDE
     Route: 065
  7. ZETRON [BUPROPION HYDROCHLORIDE] [Concomitant]
     Route: 065
  8. METHOTREXATE [Concomitant]
     Active Substance: METHOTREXATE
     Route: 065

REACTIONS (2)
  - Renal impairment [Recovering/Resolving]
  - Product dose omission issue [Unknown]
